FAERS Safety Report 17251740 (Version 1)
Quarter: 2019Q4

REPORT INFORMATION
  Report Type: Spontaneous
  Country: US (occurrence: US)
  Receive Date: 20191216
  Receipt Date: 20191216
  Transmission Date: 20200122
  Serious: No
  Sender: FDA-Public Use
  Company Number: None

PATIENT
  Age: 61 Year
  Sex: Male

DRUGS (1)
  1. INLYTA [Suspect]
     Active Substance: AXITINIB
     Indication: BENIGN RENAL NEOPLASM
     Route: 048
     Dates: start: 20190508

REACTIONS (9)
  - Influenza [None]
  - Hypoaesthesia [None]
  - Fatigue [None]
  - Erythema [None]
  - Therapy cessation [None]
  - Pain in extremity [None]
  - Nasopharyngitis [None]
  - Pain [None]
  - Asthenia [None]

NARRATIVE: CASE EVENT DATE: 201910
